FAERS Safety Report 9549267 (Version 1)
Quarter: 2013Q3

REPORT INFORMATION
  Report Type: Spontaneous
  Country: US (occurrence: US)
  Receive Date: 20130924
  Receipt Date: 20130924
  Transmission Date: 20140515
  Serious: No
  Sender: FDA-Public Use
  Company Number: US-PFIZER INC-2013270238

PATIENT
  Age: 58 Year
  Sex: Female

DRUGS (1)
  1. INLYTA [Suspect]
     Indication: RENAL CANCER
     Dosage: 5 MG, UNK
     Dates: start: 20130822, end: 20130906

REACTIONS (7)
  - Disease progression [Unknown]
  - Renal cancer [Unknown]
  - Amnesia [Unknown]
  - Tinnitus [Unknown]
  - Impaired driving ability [Unknown]
  - Speech disorder [Unknown]
  - Blood pressure increased [Unknown]
